FAERS Safety Report 9449682 (Version 2)
Quarter: 2013Q4

REPORT INFORMATION
  Report Type: Spontaneous
  Country: US (occurrence: US)
  Receive Date: 20130809
  Receipt Date: 20131003
  Transmission Date: 20140711
  Serious: No
  Sender: FDA-Public Use
  Company Number: US-BAYER-2013-096498

PATIENT
  Age: 49 Year
  Sex: Female

DRUGS (1)
  1. BETASERON [Suspect]
     Indication: MULTIPLE SCLEROSIS
     Dosage: 0.25 MG, QOD
     Route: 058
     Dates: start: 201105

REACTIONS (11)
  - Contusion [None]
  - Pyrexia [None]
  - Chills [None]
  - Tremor [None]
  - Hyperhidrosis [None]
  - Headache [None]
  - Dyspepsia [None]
  - Gastrooesophageal reflux disease [None]
  - Arthralgia [None]
  - Injection site bruising [None]
  - Fatigue [None]
